FAERS Safety Report 19789892 (Version 1)
Quarter: 2021Q3

REPORT INFORMATION
  Report Type: Spontaneous
  Country: US (occurrence: US)
  Receive Date: 20210905
  Receipt Date: 20210905
  Transmission Date: 20211014
  Serious: No
  Sender: FDA-Public Use
  Company Number: US-RECORDATI-2021002552

PATIENT

DRUGS (5)
  1. WELLBUTRIN [Concomitant]
     Active Substance: BUPROPION HYDROCHLORIDE
     Indication: PRODUCT USED FOR UNKNOWN INDICATION
     Dosage: UNK
  2. TESTOSTERONE. [Concomitant]
     Active Substance: TESTOSTERONE
     Indication: PRODUCT USED FOR UNKNOWN INDICATION
     Dosage: UNK
  3. ISTURISA [Suspect]
     Active Substance: OSILODROSTAT PHOSPHATE
     Indication: PITUITARY-DEPENDENT CUSHING^S SYNDROME
     Dosage: UNK
     Dates: start: 20210520
  4. LEXAPRO [Concomitant]
     Active Substance: ESCITALOPRAM OXALATE
     Indication: PRODUCT USED FOR UNKNOWN INDICATION
     Dosage: UNK
  5. HYDROCORTISONE. [Concomitant]
     Active Substance: HYDROCORTISONE
     Indication: PRODUCT USED FOR UNKNOWN INDICATION
     Dosage: UNK

REACTIONS (2)
  - Feeling abnormal [Unknown]
  - Decreased appetite [Unknown]

NARRATIVE: CASE EVENT DATE: 2021
